FAERS Safety Report 4341970-X (Version None)
Quarter: 2004Q2

REPORT INFORMATION
  Report Type: 
  Country: None (occurrence: None)
  Receive Date: 20040420
  Receipt Date: 20040413
  Transmission Date: 20050107
  Serious: Yes (Life-Threatening, Hospitalization)
  Sender: FDA-Public Use
  Company Number: PHNR2004AU00881

PATIENT
  Age: 78 Year
  Sex: Female

DRUGS (6)
  1. SLOW-K [Suspect]
     Dosage: 600 MG, QD
     Route: 048
     Dates: end: 20021120
  2. METHOTREXATE [Suspect]
     Indication: RHEUMATOID ARTHRITIS
     Dosage: 25 MG, WEEKLY
     Route: 048
     Dates: end: 20021118
  3. LASIX [Suspect]
     Indication: OEDEMA
     Dosage: 80 MG, QD
     Dates: end: 20021120
  4. ZANTAC [Suspect]
     Dosage: 300 MG, QD
     Route: 048
     Dates: end: 20021120
  5. ASPIRIN [Suspect]
     Dosage: 100 MG, QD
     Route: 048
     Dates: end: 20021121
  6. DEPTRAN [Suspect]
     Indication: DEPRESSION
     Dosage: 25 MG, QD
     Route: 048
     Dates: end: 20021121

REACTIONS (5)
  - MELAENA [None]
  - MUCOSAL INFLAMMATION [None]
  - PANCYTOPENIA [None]
  - PLEURAL EFFUSION [None]
  - RESPIRATORY FAILURE [None]
